FAERS Safety Report 4438495-X (Version None)
Quarter: 2004Q3

REPORT INFORMATION
  Report Type: 
  Country: None (occurrence: None)
  Receive Date: 20040831
  Receipt Date: 20040823
  Transmission Date: 20050211
  Serious: Yes (Hospitalization)
  Sender: FDA-Public Use
  Company Number: JP-MERCK-0408USA02108

PATIENT

DRUGS (3)
  1. TRUSOPT [Concomitant]
     Indication: GLAUCOMA
     Route: 047
  2. XALATAN [Concomitant]
     Indication: GLAUCOMA
     Route: 047
  3. TIMOPTIC-XE [Suspect]
     Indication: GLAUCOMA
     Route: 047
     Dates: start: 20040101, end: 20040101

REACTIONS (1)
  - ANGINA PECTORIS [None]
